FAERS Safety Report 4957384-5 (Version None)
Quarter: 2006Q1

REPORT INFORMATION
  Report Type: 
  Country: None (occurrence: None)
  Receive Date: 20060327
  Receipt Date: 20060315
  Transmission Date: 20060701
  Serious: Yes (Hospitalization)
  Sender: FDA-Public Use
  Company Number: CIP06000612

PATIENT
  Age: 49 Year
  Sex: Female
  Weight: 68 kg

DRUGS (5)
  1. ASACOL [Suspect]
     Indication: COLITIS ULCERATIVE
     Dosage: 800 MG TWICE DAILY, ORAL
     Route: 048
     Dates: start: 20030101, end: 20060301
  2. ALEVE [Suspect]
     Indication: GALLBLADDER PAIN
     Dosage: UNK
     Route: 065
  3. LORAZEPAM [Concomitant]
  4. AMBIEN [Concomitant]
  5. PRILOSEC [Concomitant]

REACTIONS (4)
  - CHOLECYSTITIS ACUTE [None]
  - CHOLELITHIASIS [None]
  - GASTRITIS [None]
  - IRRITABLE BOWEL SYNDROME [None]
